FAERS Safety Report 16782932 (Version 1)
Quarter: 2019Q3

REPORT INFORMATION
  Report Type: Spontaneous
  Country: US (occurrence: US)
  Receive Date: 20190906
  Receipt Date: 20190906
  Transmission Date: 20191005
  Serious: No
  Sender: FDA-Public Use
  Company Number: US-009507513-1908USA004499

PATIENT

DRUGS (4)
  1. LEDIPASVIR [Suspect]
     Active Substance: LEDIPASVIR
     Indication: CHRONIC HEPATITIS C
     Dosage: UNK
     Route: 048
  2. SOFOSBUVIR [Suspect]
     Active Substance: SOFOSBUVIR
     Indication: CHRONIC HEPATITIS C
     Dosage: UNK
     Route: 048
  3. REBETOL [Suspect]
     Active Substance: RIBAVIRIN
     Indication: CHRONIC HEPATITIS C
     Dosage: UNK
     Route: 048
  4. VELPATASVIR [Suspect]
     Active Substance: VELPATASVIR
     Indication: CHRONIC HEPATITIS C
     Dosage: UNK
     Route: 048

REACTIONS (1)
  - Product use issue [Unknown]
